FAERS Safety Report 9490560 (Version 1)
Quarter: 2013Q3

REPORT INFORMATION
  Report Type: Spontaneous
  Country: US (occurrence: US)
  Receive Date: 20130830
  Receipt Date: 20130830
  Transmission Date: 20140515
  Serious: Yes (Hospitalization, Other)
  Sender: FDA-Public Use
  Company Number: US-BAYER-2013-105060

PATIENT
  Age: 31 Year
  Sex: Female

DRUGS (6)
  1. YASMIN [Suspect]
  2. SPIRONOLACTONE [Concomitant]
     Dosage: UNK
     Dates: start: 20111014
  3. XANAX [Concomitant]
  4. CELEXA [Concomitant]
  5. PERCOCET [Concomitant]
  6. ACCUTANE [Concomitant]

REACTIONS (2)
  - Pulmonary embolism [None]
  - Cholelithiasis [None]
